FAERS Safety Report 8355006-7 (Version None)
Quarter: 2012Q2

REPORT INFORMATION
  Report Type: 
  Country: None (occurrence: None)
  Receive Date: 20120511
  Receipt Date: 20120502
  Transmission Date: 20120825
  Serious: Yes (Hospitalization)
  Sender: FDA-Public Use
  Company Number: DE-ABBOTT-12P-062-0927069-00

PATIENT
  Age: 61 Year
  Sex: Male
  Weight: 80 kg

DRUGS (12)
  1. DEKRISTOL [Concomitant]
     Indication: VITAMIN D DEFICIENCY
     Dosage: 20.000 IE WEEKLY
     Route: 048
     Dates: start: 20111112
  2. DICLOFENAC [Concomitant]
     Indication: RHEUMATOID ARTHRITIS
     Route: 048
     Dates: start: 20111020
  3. PANTOPRAZOLE [Concomitant]
  4. FOLSAN [Concomitant]
     Indication: VITAMIN SUPPLEMENTATION
     Dosage: 5MG WEEKLY
     Route: 048
     Dates: start: 20111115, end: 20120405
  5. FOLIC ACID [Concomitant]
     Indication: VITAMIN SUPPLEMENTATION
     Dosage: 5MG WEEKLY
     Dates: start: 20111126, end: 20120405
  6. PANTOPRAZOLE [Concomitant]
  7. METHOTREXATE [Suspect]
     Indication: RHEUMATOID ARTHRITIS
     Route: 048
     Dates: start: 20111124, end: 20120404
  8. DICLOFENAC [Concomitant]
     Indication: ARTHRALGIA
  9. PANTOPRAZOLE [Concomitant]
     Indication: PROPHYLAXIS
     Route: 048
     Dates: start: 20111110
  10. PANTOPRAZOLE [Concomitant]
     Indication: GASTRIC DISORDER
  11. CALCIUM [Concomitant]
     Indication: OSTEOPOROSIS PROPHYLAXIS
     Route: 048
     Dates: start: 20111110
  12. HUMIRA [Suspect]
     Indication: RHEUMATOID ARTHRITIS
     Route: 058
     Dates: start: 20111124, end: 20120328

REACTIONS (1)
  - RHEUMATOID ARTHRITIS [None]
